FAERS Safety Report 5630648-8 (Version None)
Quarter: 2008Q1

REPORT INFORMATION
  Report Type: 
  Country: None (occurrence: None)
  Receive Date: 20080214
  Receipt Date: 20080205
  Transmission Date: 20080703
  Serious: Yes (Hospitalization)
  Sender: FDA-Public Use
  Company Number: 2008003198

PATIENT
  Age: 60 Year
  Sex: Male
  Weight: 83.9154 kg

DRUGS (1)
  1. FRESHBURST LISTERINE MOUTHWASH (MENTHOL, METHYL SALICYLATE, EUCALYPTOL [Suspect]
     Indication: PHARYNGOLARYNGEAL PAIN
     Dosage: AS DIRECTED 2 TIMES A DAY, ORAL
     Route: 048
     Dates: start: 20080201, end: 20080202

REACTIONS (1)
  - HYPERSENSITIVITY [None]
